FAERS Safety Report 13347055 (Version 3)
Quarter: 2017Q3

REPORT INFORMATION
  Report Type: Spontaneous
  Country: US (occurrence: US)
  Receive Date: 20170317
  Receipt Date: 20170707
  Transmission Date: 20171127
  Serious: Yes (Hospitalization, Other)
  Sender: FDA-Public Use
  Company Number: US-PRINSTON PHARMACEUTICAL INC.-2017PRN00073

PATIENT
  Age: 67 Year
  Sex: Male

DRUGS (11)
  1. SPIRONOLACTONE. [Suspect]
     Active Substance: SPIRONOLACTONE
  2. METOPROLOL TARTRATE. [Suspect]
     Active Substance: METOPROLOL TARTRATE
     Indication: ATRIAL FIBRILLATION
     Dosage: 12.5 MG, 1X/DAY
  3. FUROSEMIDE. [Suspect]
     Active Substance: FUROSEMIDE
     Dosage: UNK
  4. FLUOXETINE HYDROCHLORIDE. [Suspect]
     Active Substance: FLUOXETINE HYDROCHLORIDE
     Dosage: UNK
  5. LISINOPRIL. [Suspect]
     Active Substance: LISINOPRIL
  6. ATORVASTATIN CALCIUM. [Suspect]
     Active Substance: ATORVASTATIN CALCIUM
  7. BRILINTA [Suspect]
     Active Substance: TICAGRELOR
  8. TRADJENTA [Suspect]
     Active Substance: LINAGLIPTIN
  9. PLAVIX [Suspect]
     Active Substance: CLOPIDOGREL BISULFATE
  10. ASPIRIN. [Suspect]
     Active Substance: ASPIRIN
  11. WARFARIN [Suspect]
     Active Substance: WARFARIN

REACTIONS (48)
  - Haemoglobin decreased [Recovered/Resolved]
  - Haematoma [Recovered/Resolved]
  - Urine output decreased [Recovered/Resolved]
  - Skin disorder [Recovered/Resolved]
  - Nasopharyngitis [Recovered/Resolved]
  - Perihepatic abscess [Recovered/Resolved]
  - Weight decreased [Recovered/Resolved]
  - Dysphagia [Recovered/Resolved]
  - Sepsis [Recovered/Resolved]
  - Loss of consciousness [Recovered/Resolved]
  - Wound [Recovered/Resolved]
  - Cough [Recovered/Resolved]
  - Urinary tract infection [Recovered/Resolved]
  - Intestinal obstruction [Not Recovered/Not Resolved]
  - Clostridium difficile infection [Recovered/Resolved]
  - Nephrolithiasis [Recovered/Resolved]
  - Peritoneal haematoma [Recovered/Resolved]
  - Blood pressure abnormal [Recovered/Resolved]
  - Oedema peripheral [Recovered/Resolved]
  - Respiration abnormal [Recovered/Resolved]
  - Rotator cuff syndrome [Not Recovered/Not Resolved]
  - Diarrhoea [Recovered/Resolved]
  - Lung infiltration [Recovered/Resolved]
  - Thrombosis [Recovered/Resolved]
  - Pulmonary oedema [Recovered/Resolved]
  - Brain natriuretic peptide increased [Recovered/Resolved]
  - Upper respiratory tract infection [Recovered/Resolved]
  - Dyspnoea [Recovered/Resolved]
  - Internal haemorrhage [Recovered/Resolved]
  - Dysgeusia [Recovered/Resolved]
  - Abdominal pain upper [Recovered/Resolved]
  - Protein total decreased [Recovering/Resolving]
  - Constipation [Recovered/Resolved]
  - Nasal congestion [Recovered/Resolved]
  - Atelectasis [Recovered/Resolved]
  - Oedema [Recovering/Resolving]
  - Pleural effusion [Recovered/Resolved]
  - Abscess rupture [Recovered/Resolved]
  - Body temperature decreased [Recovered/Resolved]
  - Bacterial disease carrier [Not Recovered/Not Resolved]
  - Malnutrition [Recovered/Resolved]
  - Decubitus ulcer [Recovered/Resolved]
  - Surgery [Recovered/Resolved]
  - Cardiac failure congestive [Not Recovered/Not Resolved]
  - Injury [Recovered/Resolved]
  - Skin ulcer [Recovered/Resolved]
  - Sinusitis [Recovered/Resolved]
  - Paraesthesia [Not Recovered/Not Resolved]

NARRATIVE: CASE EVENT DATE: 201706
